FAERS Safety Report 24281615 (Version 3)
Quarter: 2025Q1

REPORT INFORMATION
  Report Type: Spontaneous
  Country: US (occurrence: US)
  Receive Date: 20240904
  Receipt Date: 20250307
  Transmission Date: 20250408
  Serious: No
  Sender: SANOFI AVENTIS
  Company Number: US-SANOFI-02190228

PATIENT
  Age: 80 Year
  Sex: Male

DRUGS (3)
  1. DUPIXENT [Suspect]
     Active Substance: DUPILUMAB
     Indication: Dermatitis atopic
     Route: 058
     Dates: start: 20240821, end: 20240821
  2. DUPIXENT [Suspect]
     Active Substance: DUPILUMAB
     Indication: Dermatitis
     Dosage: 300 MG, QOW
     Route: 058
     Dates: start: 202409
  3. DUPIXENT [Suspect]
     Active Substance: DUPILUMAB
     Indication: Transient acantholytic dermatosis
     Dosage: 600 MG, QOW
     Route: 058
     Dates: start: 2024

REACTIONS (5)
  - Accidental exposure to product [Unknown]
  - Exposure via skin contact [Unknown]
  - Extra dose administered [Unknown]
  - Product use in unapproved indication [Unknown]
  - Off label use [Unknown]

NARRATIVE: CASE EVENT DATE: 20240101
